FAERS Safety Report 7402611-8 (Version None)
Quarter: 2011Q2

REPORT INFORMATION
  Report Type: 
  Country: None (occurrence: None)
  Receive Date: 20110408
  Receipt Date: 20110329
  Transmission Date: 20111010
  Serious: Yes (Death, Other)
  Sender: FDA-Public Use
  Company Number: FR-JNJFOC-20110402505

PATIENT
  Age: 1 Day
  Sex: Female

DRUGS (8)
  1. PHENYTOIN [Suspect]
     Indication: CONVULSION
     Route: 065
  2. METHYLPREDNISOLONE [Suspect]
     Indication: CONVULSION
     Route: 065
  3. TOPIRAMATE [Suspect]
     Indication: CONVULSION
     Route: 048
  4. PHENOBARBITAL SRT [Suspect]
     Indication: CONVULSION
     Route: 065
  5. CLONAZEPAM [Suspect]
     Indication: CONVULSION
     Route: 065
  6. VERAPAMIL [Suspect]
     Indication: CONVULSION
     Route: 065
  7. VIGABATRIN [Suspect]
     Indication: CONVULSION
     Route: 065
  8. PIRACETAM [Suspect]
     Indication: CONVULSION
     Route: 065

REACTIONS (2)
  - STATUS EPILEPTICUS [None]
  - DRUG INEFFECTIVE [None]
